FAERS Safety Report 10196972 (Version 1)
Quarter: 2014Q2

REPORT INFORMATION
  Report Type: Spontaneous
  Country: US (occurrence: US)
  Receive Date: 20140527
  Receipt Date: 20140527
  Transmission Date: 20141212
  Serious: Yes (Hospitalization)
  Sender: FDA-Public Use
  Company Number: US-PFIZER INC-2014142140

PATIENT
  Age: 71 Year
  Sex: Female

DRUGS (4)
  1. MOTRIN [Suspect]
     Dosage: UNK
  2. IMBRUVICA [Suspect]
     Indication: CHRONIC LYMPHOCYTIC LEUKAEMIA
     Dosage: UNK
     Route: 048
  3. ARIXTRA [Suspect]
     Indication: DEEP VEIN THROMBOSIS
     Dosage: UNK
  4. EXCEDRIN (ASPIRIN/CAFFEINE/PARACETAMOL) [Suspect]
     Dosage: UNK

REACTIONS (2)
  - Mallory-Weiss syndrome [Recovered/Resolved]
  - Gastrointestinal haemorrhage [Recovered/Resolved]
